FAERS Safety Report 11273653 (Version 3)
Quarter: 2016Q2

REPORT INFORMATION
  Report Type: Spontaneous
  Country: US (occurrence: US)
  Receive Date: 20150715
  Receipt Date: 20160502
  Transmission Date: 20160815
  Serious: Yes (Other)
  Sender: FDA-Public Use
  Company Number: US-BRISTOL-MYERS SQUIBB COMPANY-BMS-2015-046085

PATIENT
  Age: 74 Year
  Sex: Female

DRUGS (2)
  1. PREVACID [Suspect]
     Active Substance: LANSOPRAZOLE
     Indication: PRODUCT USED FOR UNKNOWN INDICATION
     Route: 065
  2. ELIQUIS [Suspect]
     Active Substance: APIXABAN
     Indication: CEREBROVASCULAR ACCIDENT PROPHYLAXIS
     Dosage: UNK
     Route: 065
     Dates: start: 201502

REACTIONS (9)
  - Pain in extremity [Unknown]
  - Dizziness [Unknown]
  - Abdominal pain [Unknown]
  - Rectal haemorrhage [Unknown]
  - Back pain [Unknown]
  - Haemorrhage [Unknown]
  - Atrial fibrillation [Unknown]
  - Arthralgia [Unknown]
  - Headache [Unknown]
